FAERS Safety Report 22229657 (Version 1)
Quarter: 2023Q2

REPORT INFORMATION
  Report Type: Report from Study
  Country: ES (occurrence: ES)
  Receive Date: 20230419
  Receipt Date: 20230419
  Transmission Date: 20230721
  Serious: Yes (Hospitalization)
  Sender: FDA-Public Use
  Company Number: ES-TAKEDA-DE201826908

PATIENT
  Age: 44 Year
  Sex: Male

DRUGS (21)
  1. ADVATE [Suspect]
     Active Substance: ANTIHEMOPHILIC FACTOR, HUMAN RECOMBINANT
     Indication: Factor VIII deficiency
     Dosage: UNK
     Route: 042
     Dates: start: 20081030
  2. ADVATE [Suspect]
     Active Substance: ANTIHEMOPHILIC FACTOR, HUMAN RECOMBINANT
     Indication: Factor VIII deficiency
     Dosage: UNK
     Route: 042
     Dates: start: 20081030
  3. ADVATE [Suspect]
     Active Substance: ANTIHEMOPHILIC FACTOR, HUMAN RECOMBINANT
     Indication: Factor VIII deficiency
     Dosage: UNK
     Route: 042
     Dates: start: 20081030
  4. ADVATE [Suspect]
     Active Substance: ANTIHEMOPHILIC FACTOR, HUMAN RECOMBINANT
     Dosage: 2000 INTERNATIONAL UNIT
     Route: 042
  5. ADVATE [Suspect]
     Active Substance: ANTIHEMOPHILIC FACTOR, HUMAN RECOMBINANT
     Dosage: 2000 INTERNATIONAL UNIT
     Route: 042
  6. ADVATE [Suspect]
     Active Substance: ANTIHEMOPHILIC FACTOR, HUMAN RECOMBINANT
     Dosage: 2000 INTERNATIONAL UNIT
     Route: 042
  7. TRANEXAMIC ACID [Concomitant]
     Active Substance: TRANEXAMIC ACID
     Indication: Gingival bleeding
     Dosage: 2 INTERNATIONAL UNIT, TID
     Route: 065
     Dates: start: 20160707, end: 20160714
  8. TRANEXAMIC ACID [Concomitant]
     Active Substance: TRANEXAMIC ACID
     Indication: Prophylaxis
  9. AMOXICILLIN [Concomitant]
     Active Substance: AMOXICILLIN
     Indication: Noninfective gingivitis
     Dosage: 500 MILLIGRAM, TID
     Route: 065
     Dates: start: 20160712, end: 20160718
  10. CHLORHEXIDINE [Concomitant]
     Active Substance: CHLORHEXIDINE
     Indication: Noninfective gingivitis
     Dosage: UNK
     Route: 065
     Dates: start: 20160712, end: 20160719
  11. EFAVIRENZ\EMTRICITABINE\TENOFOVIR DISOPROXIL FUMARATE [Concomitant]
     Active Substance: EFAVIRENZ\EMTRICITABINE\TENOFOVIR DISOPROXIL FUMARATE
     Indication: HIV infection
     Dosage: 1045 MILLIGRAM, QD
     Route: 065
     Dates: start: 20081119, end: 20150814
  12. EMTRICITABINE [Concomitant]
     Active Substance: EMTRICITABINE
     Indication: Hepatitis C
     Dosage: 1 INTERNATIONAL UNIT, QD
     Route: 065
     Dates: start: 20150610
  13. ENALAPRIL MALEATE\HYDROCHLOROTHIAZIDE [Concomitant]
     Active Substance: ENALAPRIL MALEATE\HYDROCHLOROTHIAZIDE
     Indication: Hypertension
     Dosage: UNK UNK, QD
     Route: 065
     Dates: start: 20130612
  14. LEDIPASVIR AND SOFOSBUVIR [Concomitant]
     Active Substance: LEDIPASVIR\SOFOSBUVIR
     Indication: Hepatitis C
     Dosage: UNK UNK, QD
     Route: 065
     Dates: start: 20160131
  15. OMEPRAZOLE [Concomitant]
     Active Substance: OMEPRAZOLE
     Indication: Prophylaxis against gastrointestinal ulcer
     Dosage: 20 MILLIGRAM, QOD
     Route: 065
  16. ACETAMINOPHEN [Concomitant]
     Active Substance: ACETAMINOPHEN
     Indication: Arthropathy
     Dosage: 650 MILLIGRAM, QD
     Route: 065
  17. RALTEGRAVIR [Concomitant]
     Active Substance: RALTEGRAVIR
     Indication: Hepatitis C
     Dosage: 1 INTERNATIONAL UNIT, BID
     Route: 065
     Dates: start: 20150610
  18. RIBAVARIN [Concomitant]
     Active Substance: RIBAVIRIN
     Indication: Hepatitis C
     Dosage: 400 MILLIGRAM, BID
     Route: 065
     Dates: start: 20160131
  19. EMTRICITABINE\TENOFOVIR DISOPROXIL [Concomitant]
     Active Substance: EMTRICITABINE\TENOFOVIR DISOPROXIL
     Indication: HIV infection
     Dosage: UNK UNK, QD
     Route: 065
     Dates: start: 20150815
  20. TRANEXAMIC ACID [Concomitant]
     Active Substance: TRANEXAMIC ACID
     Indication: Gingival bleeding
     Dosage: 1 GRAM, TID
     Route: 065
     Dates: start: 20130213, end: 20130220
  21. ENALAPRIL [Concomitant]
     Active Substance: ENALAPRIL
     Indication: Hypertension
     Dosage: 10 MILLIGRAM, QD
     Route: 065
     Dates: start: 20120312

REACTIONS (1)
  - Tibia fracture [Recovered/Resolved]

NARRATIVE: CASE EVENT DATE: 20180126
